FAERS Safety Report 5279909-5 (Version None)
Quarter: 2007Q1

REPORT INFORMATION
  Report Type: 
  Country: None (occurrence: None)
  Receive Date: 20070326
  Receipt Date: 20070326
  Transmission Date: 20070707
  Serious: Yes (Other)
  Sender: FDA-Public Use
  Company Number: None

PATIENT
  Sex: Female
  Weight: 70.3075 kg

DRUGS (4)
  1. JANUVIA [Suspect]
     Indication: GLUCOSE TOLERANCE IMPAIRED
     Dates: start: 20070122, end: 20070324
  2. SYNTHROID [Concomitant]
  3. ACTOS [Concomitant]
  4. LISINOPRIL [Concomitant]

REACTIONS (4)
  - CHEST DISCOMFORT [None]
  - CONDITION AGGRAVATED [None]
  - IMPAIRED HEALING [None]
  - PERIODONTAL DISEASE [None]
